FAERS Safety Report 5042268-7 (Version None)
Quarter: 2006Q2

REPORT INFORMATION
  Report Type: 
  Country: None (occurrence: None)
  Receive Date: 20060627
  Receipt Date: 20060613
  Transmission Date: 20061013
  Serious: Yes (Hospitalization, Other)
  Sender: FDA-Public Use
  Company Number: 2006076521

PATIENT
  Age: 50 Year
  Sex: Male
  Weight: 108.8633 kg

DRUGS (1)
  1. BEXTRA [Suspect]
     Indication: PAIN IN EXTREMITY
     Dosage: 20 MG (20 MG, 1 IN 1 D)
     Dates: start: 20040519

REACTIONS (4)
  - DIFFICULTY IN WALKING [None]
  - MYOCARDIAL INFARCTION [None]
  - POOR PERIPHERAL CIRCULATION [None]
  - TOBACCO USER [None]
